FAERS Safety Report 7546652 (Version 3)
Quarter: 2018Q4

REPORT INFORMATION
  Report Type: Spontaneous
  Country: US (occurrence: US)
  Receive Date: 20100708
  Receipt Date: 20181022
  Transmission Date: 20190205
  Serious: Yes (Hospitalization, Disabling, Other)
  Sender: FDA-Public Use
  Company Number: US-PFIZER INC-2010019280

PATIENT
  Age: 19 Year
  Sex: Male

DRUGS (4)
  1. TRAZODONE [Concomitant]
     Active Substance: TRAZODONE HYDROCHLORIDE
     Indication: SLEEP DISORDER
     Dosage: UNK
     Dates: start: 2006, end: 2008
  2. TRAZODONE [Concomitant]
     Active Substance: TRAZODONE HYDROCHLORIDE
     Indication: INSOMNIA
  3. TRICOR [Concomitant]
     Active Substance: FENOFIBRATE
     Indication: BLOOD CHOLESTEROL INCREASED
     Dosage: UNK
     Dates: start: 2006, end: 2008
  4. CHANTIX [Suspect]
     Active Substance: VARENICLINE TARTRATE
     Indication: SMOKING CESSATION THERAPY
     Dosage: UNK
     Route: 048
     Dates: start: 20070105, end: 200709

REACTIONS (24)
  - Hallucination [Unknown]
  - Anxiety [Not Recovered/Not Resolved]
  - Chest pain [Unknown]
  - Paranoia [Unknown]
  - Depression [Not Recovered/Not Resolved]
  - Diabetic complication [Unknown]
  - Nightmare [Unknown]
  - Muscle spasms [Unknown]
  - Aggression [Unknown]
  - Seizure [Unknown]
  - Insomnia [Unknown]
  - Abulia [Unknown]
  - Loss of consciousness [Unknown]
  - Abnormal dreams [Unknown]
  - Restlessness [Unknown]
  - Post-traumatic stress disorder [Unknown]
  - Psychotic disorder [Recovered/Resolved]
  - Anger [Unknown]
  - Suicide attempt [Recovered/Resolved]
  - Mental disorder [Unknown]
  - Intentional overdose [Recovered/Resolved]
  - Bipolar disorder [Not Recovered/Not Resolved]
  - Delusion [Unknown]
  - Amnesia [Unknown]

NARRATIVE: CASE EVENT DATE: 2007
